FAERS Safety Report 11200901 (Version 1)
Quarter: 2015Q2

REPORT INFORMATION
  Report Type: Spontaneous
  Country: JP (occurrence: JP)
  Receive Date: 20150618
  Receipt Date: 20150618
  Transmission Date: 20150821
  Serious: Yes (Other)
  Sender: FDA-Public Use
  Company Number: JP-ALLERGAN-1511196US

PATIENT
  Age: 65 Year
  Sex: Female

DRUGS (4)
  1. TRIVARIS [Suspect]
     Active Substance: TRIAMCINOLONE ACETONIDE
     Indication: PRODUCT USED FOR UNKNOWN INDICATION
     Dosage: 2 MG/0.5ML INJECTION
     Route: 057
  2. DEXAMETHASONE. [Concomitant]
     Active Substance: DEXAMETHASONE
     Indication: IRIDOCYCLITIS
     Dosage: UNK UNK, Q1HR
     Route: 047
  3. ATROPINE [Concomitant]
     Active Substance: ATROPINE
     Indication: IRIDOCYCLITIS
     Dosage: UNK UNK, QPM
     Route: 047
  4. PREDNISOLONE. [Concomitant]
     Active Substance: PREDNISOLONE
     Indication: IRIDOCYCLITIS
     Dosage: 25 MG, UNK
     Route: 048

REACTIONS (7)
  - Ophthalmic herpes simplex [Unknown]
  - Ulcerative keratitis [Unknown]
  - Cataract [Not Recovered/Not Resolved]
  - Foreign body sensation in eyes [Unknown]
  - Ocular hyperaemia [Unknown]
  - Eye discharge [Unknown]
  - Scleritis [Recovering/Resolving]
